FAERS Safety Report 4951359-8 (Version None)
Quarter: 2006Q1

REPORT INFORMATION
  Report Type: 
  Country: None (occurrence: None)
  Receive Date: 20060317
  Receipt Date: 20060313
  Transmission Date: 20060701
  Serious: Yes (Other)
  Sender: FDA-Public Use
  Company Number: 006887

PATIENT
  Age: 83 Year
  Sex: Female

DRUGS (5)
  1. MEDROXYPROGESTERONE ACETATE [Suspect]
     Dosage: ORAL
     Route: 048
     Dates: start: 19800101, end: 19990101
  2. PROVERA [Suspect]
     Dosage: ORAL
     Route: 048
     Dates: start: 19800101, end: 19990101
  3. PREMARIN [Suspect]
     Dosage: ORAL
     Route: 048
     Dates: start: 19800101, end: 19980101
  4. CYCRIN [Suspect]
     Dosage: ORAL
     Route: 048
     Dates: start: 19960601, end: 19960101
  5. PREMPRO [Suspect]
     Dosage: ORAL
     Route: 048
     Dates: start: 19991101, end: 20040201

REACTIONS (1)
  - BREAST CANCER FEMALE [None]
